FAERS Safety Report 5050724-0 (Version None)
Quarter: 2006Q3

REPORT INFORMATION
  Report Type: 
  Country: None (occurrence: None)
  Receive Date: 20060713
  Receipt Date: 20060703
  Transmission Date: 20061208
  Serious: Yes (Other)
  Sender: FDA-Public Use
  Company Number: PL-BRISTOL-MYERS SQUIBB COMPANY-13431523

PATIENT
  Age: 27 Year
  Sex: Female
  Weight: 67 kg

DRUGS (4)
  1. STAVUDINE [Suspect]
  2. LAMIVUDINE [Suspect]
  3. AMPRENAVIR [Suspect]
  4. RITONAVIR [Suspect]

REACTIONS (1)
  - BASEDOW'S DISEASE [None]
